FAERS Safety Report 6883207 (Version 2)
Quarter: 2014Q3

REPORT INFORMATION
  Report Type: Spontaneous
  Country: US (occurrence: US)
  Receive Date: 20090116
  Receipt Date: 20140908
  Transmission Date: 20150326
  Serious: Yes (Other)
  Sender: FDA-Public Use
  Company Number: US-BRISTOL-MYERS SQUIBB COMPANY-13971916

PATIENT
  Age: 43 Year
  Sex: Female
  Weight: 73.47 kg

DRUGS (5)
  1. ABILIFY [Suspect]
     Active Substance: ARIPIPRAZOLE
     Indication: BIPOLAR DISORDER
     Dosage: PREVIOUS DOSING: 2MG DAILY, 5MG DAILY, 10MG DAILY. CURRENT DOSE TAKEN FOR LAST 3 MONTHS.
     Route: 048
     Dates: start: 200708
  2. ABILIFY [Suspect]
     Active Substance: ARIPIPRAZOLE
     Indication: HALLUCINATION, AUDITORY
     Dosage: PREVIOUS DOSING: 2MG DAILY, 5MG DAILY, 10MG DAILY. CURRENT DOSE TAKEN FOR LAST 3 MONTHS.
     Route: 048
     Dates: start: 200708
  3. COGENTIN [Concomitant]
     Active Substance: BENZTROPINE MESYLATE
  4. ZOLOFT [Concomitant]
     Active Substance: SERTRALINE HYDROCHLORIDE
     Indication: DEPRESSION
  5. INVEGA [Concomitant]
     Active Substance: PALIPERIDONE

REACTIONS (3)
  - Arthralgia [Unknown]
  - Drug withdrawal syndrome [Unknown]
  - Convulsion [Unknown]

NARRATIVE: CASE EVENT DATE: 2007
